FAERS Safety Report 7909024 (Version 3)
Quarter: 2012Q4

REPORT INFORMATION
  Report Type: 
  Country: US (occurrence: US)
  Receive Date: 20110421
  Receipt Date: 20120906
  Transmission Date: 20130627
  Serious: Yes (Other)
  Sender: FDA-Public Use
  Company Number: US-US-EMD SERONO, INC.-7053992

PATIENT
  Sex: Female
  Weight: 94 kg

DRUGS (2)
  1. REBIF [Suspect]
     Indication: MULTIPLE SCLEROSIS
     Route: 058
     Dates: start: 20071003
  2. MOTRIN [Concomitant]
     Indication: PREMEDICATION

REACTIONS (7)
  - Pneumonia [Recovered/Resolved]
  - Pharyngitis streptococcal [Unknown]
  - Injection site pain [Unknown]
  - Injection site erythema [Unknown]
  - Injection site induration [Unknown]
  - Injection site warmth [Unknown]
  - Injection site mass [Unknown]
